FAERS Safety Report 6050384-6 (Version None)
Quarter: 2009Q1

REPORT INFORMATION
  Report Type: 
  Country: None (occurrence: None)
  Receive Date: 20090116
  Receipt Date: 20090105
  Transmission Date: 20090719
  Serious: Yes (Death, Hospitalization)
  Sender: FDA-Public Use
  Company Number: KV200900017

PATIENT
  Age: 88 Year
  Sex: Male
  Weight: 68 kg

DRUGS (6)
  1. PROPAFENONE HCL [Suspect]
     Indication: ATRIAL FIBRILLATION
     Dosage: 225 MG, BID, ORAL
     Route: 048
     Dates: start: 20050101, end: 20081201
  2. ISOSORBIDE MONONITRATE [Suspect]
     Indication: ANGINA PECTORIS
     Dosage: 30 MG, QD, ORAL
     Route: 048
     Dates: start: 20050101, end: 20081201
  3. SIMVASTATIN [Concomitant]
  4. FLOMAX 	/00889901/ [Concomitant]
  5. (MORNIFLUMATE) [Concomitant]
  6. METOPROLOL TARTRATE [Concomitant]

REACTIONS (3)
  - PNEUMONIA [None]
  - PRODUCT QUALITY ISSUE [None]
  - RESPIRATORY RATE INCREASED [None]
